FAERS Safety Report 4629150-1 (Version None)
Quarter: 2005Q2

REPORT INFORMATION
  Report Type: 
  Country: None (occurrence: None)
  Receive Date: 20050407
  Receipt Date: 20040127
  Transmission Date: 20051028
  Serious: Yes (Hospitalization)
  Sender: FDA-Public Use
  Company Number: 200410969JP

PATIENT
  Age: 76 Year
  Sex: Female
  Weight: 40 kg

DRUGS (6)
  1. ARAVA [Suspect]
     Indication: RHEUMATOID ARTHRITIS
     Route: 048
     Dates: start: 20040120, end: 20040126
  2. RHEUMATREX [Concomitant]
     Indication: RHEUMATOID ARTHRITIS
     Route: 048
  3. PEON [Concomitant]
     Indication: RHEUMATOID ARTHRITIS
     Route: 048
  4. CYTOTEC [Concomitant]
     Indication: RHEUMATOID ARTHRITIS
     Dosage: DOSE: 3T
     Route: 048
  5. PREDNISOLONE [Concomitant]
     Indication: RHEUMATOID ARTHRITIS
     Route: 048
  6. ACTONEL [Concomitant]
     Indication: OSTEOPOROSIS
     Route: 048

REACTIONS (3)
  - DEAFNESS [None]
  - FACIAL PALSY [None]
  - HERPES VIRUS INFECTION [None]
